FAERS Safety Report 8537340-0 (Version None)
Quarter: 2012Q3

REPORT INFORMATION
  Report Type: 
  Country: None (occurrence: None)
  Receive Date: 20120725
  Receipt Date: 20120716
  Transmission Date: 20120928
  Serious: Yes (Other)
  Sender: FDA-Public Use
  Company Number: US-ASTRAZENECA-2012SE11271

PATIENT
  Age: 62 Year
  Sex: Female
  Weight: 122.5 kg

DRUGS (16)
  1. CRESTOR [Suspect]
     Indication: STENT PLACEMENT
     Route: 048
     Dates: start: 20110901
  2. CRESTOR [Suspect]
     Route: 048
  3. LEXOPRIL [Concomitant]
  4. EFFIENT [Concomitant]
  5. ETHEPEN [Concomitant]
     Dosage: PRN
  6. AMBIEN [Concomitant]
  7. COATBON [Concomitant]
  8. CRESTOR [Suspect]
     Indication: DYSLIPIDAEMIA
     Route: 048
     Dates: start: 20110901
  9. CRESTOR [Suspect]
     Route: 048
  10. NITROSTAT [Concomitant]
  11. VENTOLIN HFA [Concomitant]
  12. LOPRESSOR [Concomitant]
  13. ECOTRIN LOW STRENGTH [Concomitant]
  14. PRILOSEC [Suspect]
     Route: 048
  15. METOPROLOL TARTRATE [Concomitant]
  16. PERCOCET [Concomitant]
     Dosage: 10 MG-325 MG

REACTIONS (3)
  - LARYNGITIS [None]
  - VOCAL CORD PARALYSIS [None]
  - APHONIA [None]
